FAERS Safety Report 5725656-2 (Version None)
Quarter: 2008Q2

REPORT INFORMATION
  Report Type: 
  Country: None (occurrence: None)
  Receive Date: 20080501
  Receipt Date: 20080421
  Transmission Date: 20081010
  Serious: Yes (Hospitalization)
  Sender: FDA-Public Use
  Company Number: US-ELI_LILLY_AND_COMPANY-US200803001946

PATIENT
  Sex: Female

DRUGS (2)
  1. FORTEO [Suspect]
     Indication: OSTEOPOROSIS
     Dosage: UNK, UNKNOWN
     Route: 058
     Dates: start: 20080201, end: 20080301
  2. FORTEO [Suspect]
     Dosage: UNK, UNK
     Dates: start: 20080101, end: 20080101

REACTIONS (17)
  - ASTHENIA [None]
  - BONE PAIN [None]
  - CHILLS [None]
  - DECREASED APPETITE [None]
  - DIARRHOEA [None]
  - DISCOMFORT [None]
  - DIZZINESS [None]
  - DYSGEUSIA [None]
  - EAR DISCOMFORT [None]
  - FAECES DISCOLOURED [None]
  - HOSPITALISATION [None]
  - MALAISE [None]
  - MYALGIA [None]
  - NAUSEA [None]
  - PERIPHERAL COLDNESS [None]
  - RETCHING [None]
  - SINUSITIS [None]
